FAERS Safety Report 13622764 (Version 3)
Quarter: 2017Q3

REPORT INFORMATION
  Report Type: Report from Study
  Country: IT (occurrence: IT)
  Receive Date: 20170607
  Receipt Date: 20170809
  Transmission Date: 20171127
  Serious: No
  Sender: FDA-Public Use
  Company Number: PHHY2016IT121755

PATIENT
  Age: 52 Year
  Sex: Female

DRUGS (2)
  1. GILENYA [Suspect]
     Active Substance: FINGOLIMOD HYDROCHLORIDE
     Indication: MULTIPLE SCLEROSIS
     Dosage: QD
     Route: 048
     Dates: start: 20131114, end: 20160502
  2. GILENYA [Suspect]
     Active Substance: FINGOLIMOD HYDROCHLORIDE
     Dosage: QD
     Route: 048
     Dates: start: 20160503

REACTIONS (6)
  - Alanine aminotransferase increased [Unknown]
  - White blood cell count decreased [Unknown]
  - Blood alkaline phosphatase increased [Unknown]
  - Blood cholesterol increased [Unknown]
  - Gamma-glutamyltransferase increased [Unknown]
  - Lymphopenia [Recovering/Resolving]

NARRATIVE: CASE EVENT DATE: 20160503
